FAERS Safety Report 4873811-6 (Version None)
Quarter: 2006Q1

REPORT INFORMATION
  Report Type: 
  Country: None (occurrence: None)
  Receive Date: 20060104
  Receipt Date: 20051220
  Transmission Date: 20060701
  Serious: Yes (Hospitalization)
  Sender: FDA-Public Use
  Company Number: 220533

PATIENT
  Age: 53 Year
  Sex: Male
  Weight: 91.2 kg

DRUGS (3)
  1. AVASTIN [Suspect]
     Indication: PANCREATIC CARCINOMA
     Dosage: 912 MG, DAYS 1+15, INTRAVENOUS
     Route: 042
     Dates: start: 20051213, end: 20051213
  2. GEMCITABINE (GEMCITABINE HYDROCHLORIDE) [Suspect]
     Indication: PANCREATIC CARCINOMA
     Dosage: 2180 MG, DAYS 1+15, INTRAVENOUS
     Route: 042
     Dates: start: 20051213, end: 20051213
  3. OXALIPLATIN (OXALIPLATIN) [Suspect]
     Indication: PANCREATIC CARCINOMA
     Dosage: 218 MG
     Dates: start: 20051214, end: 20051214

REACTIONS (1)
  - APPENDICITIS PERFORATED [None]
